FAERS Safety Report 10046396 (Version 1)
Quarter: 2014Q1

REPORT INFORMATION
  Report Type: Spontaneous
  Country: US (occurrence: US)
  Receive Date: 20140331
  Receipt Date: 20140331
  Transmission Date: 20141002
  Serious: No
  Sender: FDA-Public Use
  Company Number: US-BIOGENIDEC-2014BI027502

PATIENT
  Age: 52 Year
  Sex: Female

DRUGS (11)
  1. TECFIDERA [Suspect]
     Indication: MULTIPLE SCLEROSIS
     Route: 048
  2. BLACK COHOSH [Concomitant]
  3. CRESTOR [Concomitant]
  4. FIBERCHOICE [Concomitant]
  5. GABAPENTIN [Concomitant]
  6. MELOXICAM [Concomitant]
  7. OMEPRAZOLE [Concomitant]
  8. OXYCONTIN [Concomitant]
  9. PROBIOTIC COMPLEX ACIDOPHILUS [Concomitant]
  10. TRUBIOTICS [Concomitant]
  11. VESICARE [Concomitant]

REACTIONS (1)
  - Malaise [Unknown]
